FAERS Safety Report 7916751-8 (Version None)
Quarter: 2011Q4

REPORT INFORMATION
  Report Type: 
  Country: None (occurrence: None)
  Receive Date: 20111116
  Receipt Date: 20111105
  Transmission Date: 20120403
  Serious: Yes (Hospitalization, Other)
  Sender: FDA-Public Use
  Company Number: US-BAYER-2011-026866

PATIENT
  Age: 24 Year
  Sex: Female
  Weight: 61.224 kg

DRUGS (2)
  1. YASMIN [Suspect]
     Indication: CONTRACEPTION
     Dosage: UNK
     Dates: start: 20000101, end: 20050101
  2. YAZ [Suspect]
     Indication: CONTRACEPTION
     Dosage: UNK
     Dates: start: 20050101, end: 20090101

REACTIONS (5)
  - CHOLECYSTITIS CHRONIC [None]
  - MENTAL DISORDER [None]
  - INJURY [None]
  - BILIARY DYSKINESIA [None]
  - ABDOMINAL PAIN [None]
